FAERS Safety Report 15577992 (Version 3)
Quarter: 2019Q1

REPORT INFORMATION
  Report Type: Spontaneous
  Country: FR (occurrence: FR)
  Receive Date: 20181102
  Receipt Date: 20190131
  Transmission Date: 20190417
  Serious: Yes (Hospitalization)
  Sender: FDA-Public Use
  Company Number: FR-SUN PHARMACEUTICAL INDUSTRIES LTD-2018RR-189559

PATIENT
  Age: 63 Year
  Sex: Male
  Weight: 79 kg

DRUGS (6)
  1. VOLTARENE (DICLOFENAC DIETHYLAMINE) [Suspect]
     Active Substance: DICLOFENAC DIETHYLAMINE
     Indication: OESOPHAGITIS
     Dosage: ()
     Route: 065
     Dates: end: 20180923
  2. ESOMEPRAZOLE. [Suspect]
     Active Substance: ESOMEPRAZOLE MAGNESIUM
     Indication: PAIN
     Dosage: ()
     Route: 065
     Dates: end: 20180923
  3. KETOPROFEN. [Suspect]
     Active Substance: KETOPROFEN
     Indication: INFLAMMATION
     Dosage: ()
     Route: 065
     Dates: end: 20180923
  4. TRAMADOL. [Suspect]
     Active Substance: TRAMADOL
     Indication: INFLAMMATION
     Dosage: ()
     Route: 065
     Dates: end: 20180923
  5. VESICARE [Suspect]
     Active Substance: SOLIFENACIN SUCCINATE
     Indication: HYPERTONIC BLADDER
     Dosage: ()
     Route: 065
     Dates: end: 20180923
  6. VALSARTAN. [Suspect]
     Active Substance: VALSARTAN
     Indication: HYPERTENSION
     Dosage: ()
     Route: 048
     Dates: end: 20180923

REACTIONS (1)
  - Cholestasis [Recovered/Resolved]

NARRATIVE: CASE EVENT DATE: 20180922
